FAERS Safety Report 7148115-1 (Version None)
Quarter: 2010Q4

REPORT INFORMATION
  Report Type: 
  Country: None (occurrence: None)
  Receive Date: 20101209
  Receipt Date: 20101109
  Transmission Date: 20110411
  Serious: No
  Sender: FDA-Public Use
  Company Number: US-PFIZER INC-US-WYE-H18139910

PATIENT
  Age: 86 Year
  Sex: Female
  Weight: 54 kg

DRUGS (3)
  1. ADVIL [Suspect]
     Indication: PAIN IN EXTREMITY
     Dosage: TWO TABLETS WITH FOOD
     Route: 048
  2. ADVIL [Suspect]
     Dosage: ONE TABLET
     Route: 048
  3. PHENOBARBITAL [Concomitant]

REACTIONS (1)
  - DRUG INEFFECTIVE [None]
